FAERS Safety Report 19419554 (Version 1)
Quarter: 2021Q2

REPORT INFORMATION
  Report Type: Spontaneous
  Country: US (occurrence: US)
  Receive Date: 20210615
  Receipt Date: 20210615
  Transmission Date: 20210717
  Serious: No
  Sender: FDA-Public Use
  Company Number: US-PFIZER INC-2021305843

PATIENT
  Age: 23 Year
  Sex: Female
  Weight: 139.25 kg

DRUGS (1)
  1. GENOTROPIN [Suspect]
     Active Substance: SOMATROPIN
     Indication: GROWTH HORMONE DEFICIENCY
     Dosage: UNK

REACTIONS (4)
  - Weight decreased [Unknown]
  - Device breakage [Unknown]
  - Device use issue [Unknown]
  - Wrong technique in device usage process [Unknown]
